FAERS Safety Report 9519329 (Version 1)
Quarter: 2013Q2

REPORT INFORMATION
  Report Type: Spontaneous
  Country: US (occurrence: None)
  Receive Date: 20130305
  Receipt Date: 20130305
  Transmission Date: 20140414
  Serious: Yes (Other)
  Sender: FDA-Public Use
  Company Number: 163-21880-12061273

PATIENT
  Age: 78 Year
  Sex: Female
  Weight: 59.88 kg

DRUGS (3)
  1. REVLIMID [Suspect]
     Indication: 5Q MINUS SYNDROME
     Dosage: 10 MG, 21 IN 28 D, PO
     Route: 048
     Dates: start: 20111007
  2. CHOLESTEROL MED (CHOLESTEROL- AND TRIGLYCERIDE REDUCERS) (UNKNOWN) [Concomitant]
  3. ASA (ACETYLSALICYLIC ACID) (UNKNOWN) [Concomitant]

REACTIONS (5)
  - Rash [None]
  - Alopecia [None]
  - Thyroid function test abnormal [None]
  - Hyperhidrosis [None]
  - Pruritus [None]
